FAERS Safety Report 5936084-9 (Version None)
Quarter: 2008Q4

REPORT INFORMATION
  Report Type: 
  Country: None (occurrence: None)
  Receive Date: 20081030
  Receipt Date: 20081022
  Transmission Date: 20090506
  Serious: Yes (Hospitalization)
  Sender: FDA-Public Use
  Company Number: JP-PFIZER INC-2008048910

PATIENT
  Sex: Female

DRUGS (5)
  1. AZULFIDINE [Suspect]
     Indication: RHEUMATOID ARTHRITIS
     Route: 048
     Dates: start: 20080519, end: 20080607
  2. HYPEN [Suspect]
     Indication: RHEUMATOID ARTHRITIS
     Route: 048
     Dates: start: 20080519, end: 20080607
  3. RIDAURA [Concomitant]
     Indication: RHEUMATOID ARTHRITIS
     Route: 048
     Dates: end: 20080519
  4. ULGUT [Concomitant]
     Route: 048
     Dates: start: 20030411, end: 20080607
  5. LOXONIN [Concomitant]
     Dates: end: 20080519

REACTIONS (8)
  - ABDOMINAL PAIN UPPER [None]
  - CONJUNCTIVAL HYPERAEMIA [None]
  - DYSGEUSIA [None]
  - ERYTHEMA [None]
  - LIVER DISORDER [None]
  - PLATELET COUNT DECREASED [None]
  - PYREXIA [None]
  - WHITE BLOOD CELL COUNT INCREASED [None]
